FAERS Safety Report 9518554 (Version 1)
Quarter: 2013Q3

REPORT INFORMATION
  Report Type: Report from Study
  Country: BR (occurrence: BR)
  Receive Date: 20130912
  Receipt Date: 20130912
  Transmission Date: 20140515
  Serious: Yes (Other)
  Sender: FDA-Public Use
  Company Number: PHHY2013BR098512

PATIENT
  Age: 52 Year
  Sex: Male
  Weight: 92 kg

DRUGS (2)
  1. XOLAIR [Suspect]
     Dosage: 300 MG, BIW
  2. FORASEQ [Suspect]
     Dosage: 1 DF, QD

REACTIONS (3)
  - Chronic obstructive pulmonary disease [Unknown]
  - Lung disorder [Unknown]
  - Asthma [Unknown]
